FAERS Safety Report 15638012 (Version 1)
Quarter: 2018Q4

REPORT INFORMATION
  Report Type: Spontaneous
  Country: US (occurrence: US)
  Receive Date: 20181120
  Receipt Date: 20181120
  Transmission Date: 20190205
  Serious: No
  Sender: FDA-Public Use
  Company Number: US-JNJFOC-20180725348

PATIENT
  Age: 75 Year
  Sex: Male
  Weight: 57 kg

DRUGS (17)
  1. VITAMIN D3 [Concomitant]
     Active Substance: CHOLECALCIFEROL
  2. DOXAZOSIN [Concomitant]
     Active Substance: DOXAZOSIN\DOXAZOSIN MESYLATE
  3. CYANOCOBALAMIN. [Concomitant]
     Active Substance: CYANOCOBALAMIN
  4. PSYLLIUM HUSK. [Concomitant]
     Active Substance: PSYLLIUM HUSK
  5. OMEPRAZOLE. [Concomitant]
     Active Substance: OMEPRAZOLE
  6. PARACETAMOL + CAFFEINE [Concomitant]
     Active Substance: ACETAMINOPHEN\CAFFEINE
  7. IMBRUVICA [Suspect]
     Active Substance: IBRUTINIB
     Indication: WALDENSTROM^S MACROGLOBULINAEMIA
     Route: 048
     Dates: start: 2018
  8. TOCOPHEROL [Concomitant]
     Active Substance: TOCOPHEROL
  9. IMBRUVICA [Suspect]
     Active Substance: IBRUTINIB
     Indication: WALDENSTROM^S MACROGLOBULINAEMIA
     Route: 048
     Dates: start: 20180302
  10. FLONASE [Concomitant]
     Active Substance: FLUTICASONE PROPIONATE
  11. LORATADINE. [Concomitant]
     Active Substance: LORATADINE
  12. LORAZEPAM. [Concomitant]
     Active Substance: LORAZEPAM
  13. METOPROLOL. [Concomitant]
     Active Substance: METOPROLOL
  14. MULTIVITAMINS [Concomitant]
     Active Substance: VITAMINS
  15. ZOLPIDEM [Concomitant]
     Active Substance: ZOLPIDEM\ZOLPIDEM TARTRATE
  16. ASCORBIC ACID. [Concomitant]
     Active Substance: ASCORBIC ACID
  17. CELECOXIB. [Concomitant]
     Active Substance: CELECOXIB

REACTIONS (4)
  - Incorrect dose administered [Unknown]
  - Adverse event [Unknown]
  - Contusion [Unknown]
  - Off label use [Unknown]

NARRATIVE: CASE EVENT DATE: 2018
